FAERS Safety Report 15545673 (Version 1)
Quarter: 2018Q4

REPORT INFORMATION
  Report Type: Report from Study
  Country: US (occurrence: US)
  Receive Date: 20181024
  Receipt Date: 20181024
  Transmission Date: 20190205
  Serious: No
  Sender: FDA-Public Use
  Company Number: PHEH2018US044384

PATIENT
  Sex: Male

DRUGS (1)
  1. COSENTYX [Suspect]
     Active Substance: SECUKINUMAB
     Indication: ANKYLOSING SPONDYLITIS
     Route: 058

REACTIONS (5)
  - Therapeutic response shortened [Unknown]
  - Axillary mass [Unknown]
  - Pulmonary mass [Unknown]
  - Musculoskeletal stiffness [Unknown]
  - Cancer in remission [Unknown]
